FAERS Safety Report 7961193-2 (Version None)
Quarter: 2011Q4

REPORT INFORMATION
  Report Type: 
  Country: None (occurrence: None)
  Receive Date: 20111121
  Receipt Date: 20111012
  Transmission Date: 20120403
  Serious: No
  Sender: FDA-Public Use
  Company Number: 1000024653

PATIENT
  Sex: Female

DRUGS (7)
  1. VIIBRYD [Suspect]
     Indication: OBSESSIVE-COMPULSIVE DISORDER
     Dosage: 10 MG (10 MG,1 IN 1 D),ORAL
     Route: 048
     Dates: start: 20111011
  2. TOPAMAX (TOPIRAMATE) (TOPIRAMATE) [Concomitant]
  3. TRIAMTERENE (TRIAMETERE) (TRIAMTERENE) [Concomitant]
  4. HYDROCHLOROTHIAZIDE (HYDROCHLOROTHIAZIDE) (HYDROCHLORTHIAZIDE) [Concomitant]
  5. MELOXICAM [Concomitant]
  6. OMEPRAZOLE [Concomitant]
  7. ESTRATEST (ESTRATEST HS) (ESTRATEST HS ) [Concomitant]

REACTIONS (4)
  - DIARRHOEA [None]
  - HEADACHE [None]
  - ABDOMINAL PAIN [None]
  - OFF LABEL USE [None]
